FAERS Safety Report 9408888 (Version 2)
Quarter: 2013Q3

REPORT INFORMATION
  Report Type: Report from Study
  Country: US (occurrence: US)
  Receive Date: 20130719
  Receipt Date: 20130726
  Transmission Date: 20140515
  Serious: Yes (Hospitalization, Other)
  Sender: FDA-Public Use
  Company Number: US-PFIZER INC-2013208086

PATIENT
  Age: 69 Year
  Sex: Female
  Weight: 79 kg

DRUGS (2)
  1. SUTENT [Suspect]
     Indication: OVARIAN EPITHELIAL CANCER
     Dosage: 50 MG, QD FOR 4 WEEKS, FOLLOWED BY 2 WEEKS OFF
     Route: 048
     Dates: start: 20130606, end: 20130623
  2. AMLODIPINE BESILATE [Suspect]
     Indication: BLOOD PRESSURE
     Dosage: 5 MG, DAILY
     Route: 048
     Dates: start: 20130618, end: 20130623

REACTIONS (3)
  - Dehydration [Recovering/Resolving]
  - Fatigue [Recovered/Resolved]
  - Hypotension [Recovering/Resolving]
